FAERS Safety Report 15487217 (Version 1)
Quarter: 2018Q4

REPORT INFORMATION
  Report Type: Report from Study
  Country: TR (occurrence: TR)
  Receive Date: 20181011
  Receipt Date: 20181011
  Transmission Date: 20190205
  Serious: Yes (Death, Other)
  Sender: FDA-Public Use
  Company Number: TR-ACCORD-073250

PATIENT

DRUGS (2)
  1. FLUOROURACIL. [Suspect]
     Active Substance: FLUOROURACIL
     Indication: ANAL CANCER
     Dosage: 5-FU/MMC (750 MG/M2/D OF 5-FU VIA CONTINUOUS INFUSION ON DAYS 1 TO 5)
  2. MITOMYCIN. [Suspect]
     Active Substance: MITOMYCIN
     Indication: ANAL CANCER
     Dosage: ON 29 TO 32 WITH 15 MG/M2/D OF MMC BOLUS ON DAY 1

REACTIONS (1)
  - Febrile neutropenia [Fatal]
